FAERS Safety Report 16306474 (Version 1)
Quarter: 2019Q2

REPORT INFORMATION
  Report Type: Spontaneous
  Country: FR (occurrence: FR)
  Receive Date: 20190513
  Receipt Date: 20190513
  Transmission Date: 20190711
  Serious: Yes (Life-Threatening)
  Sender: FDA-Public Use
  Company Number: PHHY2019FR108017

PATIENT
  Age: 61 Year
  Sex: Female
  Weight: 90 kg

DRUGS (5)
  1. ZOPICLONE [Suspect]
     Active Substance: ZOPICLONE
     Indication: POISONING DELIBERATE
     Dosage: 105 MG, UNK
     Route: 048
  2. FLUOXETINE HYDROCHLORIDE. [Suspect]
     Active Substance: FLUOXETINE HYDROCHLORIDE
     Indication: POISONING DELIBERATE
     Dosage: UNK
     Route: 048
  3. BROMAZEPAM [Suspect]
     Active Substance: BROMAZEPAM
     Indication: POISONING DELIBERATE
     Dosage: 720 MG, UNK
     Route: 048
  4. TERCIAN [Suspect]
     Active Substance: CYAMEMAZINE
     Indication: POISONING DELIBERATE
     Dosage: 1500 MG, UNK
     Route: 048
  5. DEPAMIDE [Suspect]
     Active Substance: VALPROMIDE
     Indication: POISONING DELIBERATE
     Dosage: 9000 MG, UNK
     Route: 065

REACTIONS (3)
  - Poisoning deliberate [Recovered/Resolved]
  - Mydriasis [Recovered/Resolved]
  - Coma [Recovered/Resolved]

NARRATIVE: CASE EVENT DATE: 20190419
